FAERS Safety Report 10061579 (Version 1)
Quarter: 2014Q2

REPORT INFORMATION
  Report Type: Spontaneous
  Country: US (occurrence: None)
  Receive Date: 20140404
  Receipt Date: 20140404
  Transmission Date: 20141212
  Serious: Yes (Other)
  Sender: FDA-Public Use
  Company Number: None

PATIENT
  Age: 51 Year
  Sex: Female
  Weight: 95.26 kg

DRUGS (1)
  1. LUPRON [Suspect]
     Indication: MENSTRUAL CYCLE MANAGEMENT
     Route: 030

REACTIONS (5)
  - Arthralgia [None]
  - Headache [None]
  - Neck pain [None]
  - Malaise [None]
  - Pain [None]
